FAERS Safety Report 5380690-X (Version None)
Quarter: 2007Q3

REPORT INFORMATION
  Report Type: 
  Country: None (occurrence: None)
  Receive Date: 20070706
  Receipt Date: 20070629
  Transmission Date: 20080115
  Serious: Yes (Other)
  Sender: FDA-Public Use
  Company Number: GB-BRISTOL-MYERS SQUIBB COMPANY-13835574

PATIENT
  Age: 69 Year
  Sex: Female

DRUGS (5)
  1. METFORMIN HCL [Suspect]
     Indication: TYPE 2 DIABETES MELLITUS
     Route: 048
     Dates: start: 20070503, end: 20070610
  2. ASPIRIN [Concomitant]
     Indication: AMAUROSIS FUGAX
     Route: 048
     Dates: start: 19981023
  3. DICLOFENAC [Concomitant]
     Indication: CYSTOCELE
     Route: 048
     Dates: start: 20050307
  4. LISINOPRIL [Concomitant]
     Indication: HYPERTENSION
     Route: 048
     Dates: start: 20041223
  5. SIMVASTATIN [Concomitant]
     Indication: CARDIOVASCULAR DISORDER
     Dates: start: 20061117

REACTIONS (4)
  - ASTHENIA [None]
  - CONSTIPATION [None]
  - DYSPEPSIA [None]
  - PARAESTHESIA [None]
